FAERS Safety Report 8600958-0 (Version None)
Quarter: 2012Q3

REPORT INFORMATION
  Report Type: 
  Country: None (occurrence: None)
  Receive Date: 20120817
  Receipt Date: 20120816
  Transmission Date: 20120928
  Serious: Yes (Death, Life-Threatening, Hospitalization, Other)
  Sender: FDA-Public Use
  Company Number: US-ROXANE LABORATORIES, INC.-2011-RO-01200RO

PATIENT
  Age: 68 Year
  Sex: Female
  Weight: 88 kg

DRUGS (15)
  1. CALCIUM [Concomitant]
     Dosage: 1000 MG
     Route: 048
  2. VICOPROFEN [Concomitant]
     Route: 048
  3. LEVOTHYROXINE SODIUM [Concomitant]
     Dosage: 100 MG
     Route: 048
  4. PROCHLORPERAZINE [Concomitant]
     Dosage: 10 MG
     Route: 048
  5. OMEPRAZOLE [Concomitant]
     Dosage: 20 MG
     Route: 048
  6. ALBUTEROL [Concomitant]
     Route: 055
     Dates: start: 20110807
  7. OXYCONTIN [Concomitant]
     Indication: BACK PAIN
     Dosage: 40 MG
     Route: 048
     Dates: start: 20110721
  8. ONDANSETRON [Concomitant]
     Route: 048
  9. LACTULOSE [Concomitant]
     Route: 048
     Dates: start: 20110705
  10. DEXAMETHASONE [Suspect]
     Indication: PALLIATIVE CARE
     Dosage: 8 MG
     Route: 048
     Dates: start: 20110705
  11. FOLIC ACID [Concomitant]
     Dosage: 1 MG
     Route: 048
  12. CRIZOTINIB [Suspect]
     Indication: NON-SMALL CELL LUNG CANCER
     Dosage: 500 MG
     Route: 048
     Dates: start: 20110726, end: 20110816
  13. ATORVASTATIN [Concomitant]
     Indication: HYPERCHOLESTEROLAEMIA
     Dosage: 10 MG
     Route: 048
  14. COLACE [Concomitant]
     Dosage: 100 MG
     Route: 048
  15. CLONAZEPAM [Concomitant]
     Dosage: 0.5 MG
     Route: 048
     Dates: start: 20110807

REACTIONS (9)
  - HYPOTHYROIDISM [None]
  - DYSPNOEA [None]
  - GASTROOESOPHAGEAL REFLUX DISEASE [None]
  - DISEASE PROGRESSION [None]
  - MULTI-ORGAN FAILURE [None]
  - URINARY TRACT INFECTION [None]
  - CANDIDIASIS [None]
  - CONSTIPATION [None]
  - PNEUMONIA [None]
